APPROVED DRUG PRODUCT: IBUPROFEN
Active Ingredient: IBUPROFEN
Strength: 400MG
Dosage Form/Route: TABLET;ORAL
Application: A070081 | Product #001
Applicant: JOHNSON AND JOHNSON CONSUMER INC MCNEIL CONSUMER HEALTHCARE DIV
Approved: Jun 16, 1986 | RLD: No | RS: No | Type: DISCN